FAERS Safety Report 9757292 (Version 1)
Quarter: 2013Q4

REPORT INFORMATION
  Report Type: Spontaneous
  Country: GB (occurrence: GB)
  Receive Date: 20131214
  Receipt Date: 20131214
  Transmission Date: 20140711
  Serious: Yes (Hospitalization, Other)
  Sender: FDA-Public Use
  Company Number: GB-ROCHE-1319291

PATIENT
  Age: 87 Year
  Sex: Female

DRUGS (2)
  1. MIRCERA [Suspect]
     Indication: NEPHROGENIC ANAEMIA
     Route: 058
     Dates: start: 20100125, end: 20131203
  2. ARANESP [Suspect]
     Indication: NEPHROGENIC ANAEMIA
     Route: 058
     Dates: start: 201206, end: 201303

REACTIONS (2)
  - Anaemia [Not Recovered/Not Resolved]
  - Aplasia pure red cell [Not Recovered/Not Resolved]
